FAERS Safety Report 13449800 (Version 1)
Quarter: 2017Q2

REPORT INFORMATION
  Report Type: Spontaneous
  Country: US (occurrence: US)
  Receive Date: 20170417
  Receipt Date: 20170417
  Transmission Date: 20170830
  Serious: Yes (Other)
  Sender: FDA-Public Use
  Company Number: US-BION-20160390

PATIENT
  Sex: Female

DRUGS (2)
  1. ASPERCREME LIDOCAINE [Concomitant]
  2. ALEVE [Suspect]
     Active Substance: NAPROXEN SODIUM
     Indication: SCIATICA
     Route: 048

REACTIONS (2)
  - Off label use [Unknown]
  - Blood pressure increased [Unknown]
